FAERS Safety Report 10173150 (Version 1)
Quarter: 2014Q2

REPORT INFORMATION
  Report Type: Spontaneous
  Country: US (occurrence: US)
  Receive Date: 20140515
  Receipt Date: 20140515
  Transmission Date: 20141212
  Serious: No
  Sender: FDA-Public Use
  Company Number: US-PFIZER INC-2014129580

PATIENT
  Age: 30 Year
  Sex: Female
  Weight: 63.49 kg

DRUGS (2)
  1. ADVIL [Suspect]
     Indication: PAIN
     Dosage: 200 MG, UNK
     Dates: start: 20140501, end: 20140501
  2. ADVIL [Suspect]
     Indication: DYSMENORRHOEA

REACTIONS (1)
  - Somnolence [Unknown]
